FAERS Safety Report 7279348-1 (Version None)
Quarter: 2011Q1

REPORT INFORMATION
  Report Type: 
  Country: None (occurrence: None)
  Receive Date: 20110207
  Receipt Date: 20110201
  Transmission Date: 20110831
  Serious: Yes (Death)
  Sender: FDA-Public Use
  Company Number: AU-BRISTOL-MYERS SQUIBB COMPANY-15222375

PATIENT
  Age: 68 Year
  Sex: Male
  Weight: 152 kg

DRUGS (12)
  1. OMEPRAZOLE [Concomitant]
     Dosage: OMEPRAZOLE GA
  2. AVAPRO [Concomitant]
  3. PREDNISOLONE [Concomitant]
  4. MOVALIS [Concomitant]
  5. ORENCIA [Suspect]
     Indication: RHEUMATOID ARTHRITIS
     Route: 042
     Dates: start: 20071001, end: 20100501
  6. METHOTREXATE [Concomitant]
  7. PHYSIOTENS [Concomitant]
  8. MOBIC [Concomitant]
  9. ZANEDIP [Concomitant]
     Indication: HYPERTENSION
     Route: 048
  10. COVERSYL PLUS [Concomitant]
     Indication: HYPERTENSION
     Dosage: 1 DF: 5/1.25MG
     Route: 048
  11. FOLIC ACID [Concomitant]
  12. LASIX [Concomitant]
     Dosage: AS NEEDED

REACTIONS (1)
  - DEATH [None]
